FAERS Safety Report 23682698 (Version 3)
Quarter: 2024Q3

REPORT INFORMATION
  Report Type: Report from Study
  Country: US (occurrence: US)
  Receive Date: 20240328
  Receipt Date: 20240812
  Transmission Date: 20241017
  Serious: No
  Sender: DR REDDYS
  Company Number: US-drreddys-SPO/USA/23/0175128

PATIENT
  Age: 5 Year
  Sex: Male
  Weight: 21.3 kg

DRUGS (4)
  1. SAPROPTERIN DIHYDROCHLORIDE [Suspect]
     Active Substance: SAPROPTERIN DIHYDROCHLORIDE
     Indication: Phenylketonuria
     Route: 048
  2. SAPROPTERIN DIHYDROCHLORIDE [Suspect]
     Active Substance: SAPROPTERIN DIHYDROCHLORIDE
     Indication: Phenylketonuria
     Dosage: DISSOLVE ONE PACKET (500MG) IN 4-8 OUNCES OF WATER OR APPLE JUICE AND TAKE DAILY WITH A MEAL.
     Route: 048
  3. SAPROPTERIN DIHYDROCHLORIDE [Suspect]
     Active Substance: SAPROPTERIN DIHYDROCHLORIDE
     Route: 048
  4. Glytactin Bettermilk 15-15 [Concomitant]
     Indication: Product used for unknown indication

REACTIONS (4)
  - Pharyngitis streptococcal [Unknown]
  - Influenza [Unknown]
  - Ear infection [Unknown]
  - Nasopharyngitis [Unknown]
